FAERS Safety Report 13479923 (Version 3)
Quarter: 2018Q1

REPORT INFORMATION
  Report Type: Report from Study
  Country: US (occurrence: US)
  Receive Date: 20170424
  Receipt Date: 20180117
  Transmission Date: 20180508
  Serious: No
  Sender: FDA-Public Use
  Company Number: US-AMGEN-USASL2017039800

PATIENT
  Age: 73 Year
  Sex: Female

DRUGS (1)
  1. REPATHA [Suspect]
     Active Substance: EVOLOCUMAB
     Indication: HYPERCHOLESTEROLAEMIA
     Dosage: 420 MG (3.5ML), QMO
     Route: 065
     Dates: start: 20170228

REACTIONS (2)
  - Fatigue [Unknown]
  - Dysgeusia [Unknown]

NARRATIVE: CASE EVENT DATE: 2017
